FAERS Safety Report 22102165 (Version 3)
Quarter: 2023Q1

REPORT INFORMATION
  Report Type: Report from Study
  Country: FR (occurrence: FR)
  Receive Date: 20230316
  Receipt Date: 20230330
  Transmission Date: 20230417
  Serious: Yes (Hospitalization)
  Sender: FDA-Public Use
  Company Number: FR-JNJFOC-20221020526

PATIENT
  Age: 74 Year
  Sex: Female
  Weight: 78 kg

DRUGS (15)
  1. XANAX [Suspect]
     Active Substance: ALPRAZOLAM
     Indication: Product used for unknown indication
     Dosage: 0.25 MILLIGRAM, TID
     Route: 065
     Dates: start: 202301
  2. SELEXIPAG [Suspect]
     Active Substance: SELEXIPAG
     Indication: Pulmonary arterial hypertension
     Dosage: 1400 MICROGRAM, BID
     Route: 048
     Dates: start: 20220610
  3. SELEXIPAG [Suspect]
     Active Substance: SELEXIPAG
     Dosage: 200 MICROGRAM, BID (2 TIMES DAILY)
     Route: 048
     Dates: start: 20221006
  4. SELEXIPAG [Suspect]
     Active Substance: SELEXIPAG
     Dosage: 400 MICROGRAM, BID (2 TIMES DAILY)
     Route: 048
     Dates: start: 20221013
  5. SELEXIPAG [Suspect]
     Active Substance: SELEXIPAG
     Dosage: 600 MICROGRAM, BID
     Route: 048
     Dates: start: 20221020
  6. SELEXIPAG [Suspect]
     Active Substance: SELEXIPAG
     Dosage: 800 MICROGRAM, BID
     Route: 048
     Dates: start: 20221027
  7. SELEXIPAG [Suspect]
     Active Substance: SELEXIPAG
     Dosage: 1000 MICROGRAM, BID
     Route: 048
     Dates: start: 20221114
  8. SELEXIPAG [Suspect]
     Active Substance: SELEXIPAG
     Dosage: 1200 MICROGRAM, BID
     Route: 048
     Dates: start: 20221124
  9. SELEXIPAG [Suspect]
     Active Substance: SELEXIPAG
     Dosage: 1000 MICROGRAM, BID
     Route: 048
     Dates: start: 20221201
  10. SELEXIPAG [Suspect]
     Active Substance: SELEXIPAG
     Dosage: 1200 MICROGRAM, BID
     Route: 048
     Dates: start: 20230105
  11. SELEXIPAG [Suspect]
     Active Substance: SELEXIPAG
     Dosage: 1400 MICROGRAM, BID
     Route: 048
     Dates: start: 20230120
  12. SELEXIPAG [Suspect]
     Active Substance: SELEXIPAG
     Dosage: 1200 MICROGRAM, BID
     Route: 048
     Dates: start: 20230202
  13. BOSENTAN [Concomitant]
     Active Substance: BOSENTAN
     Indication: Pulmonary arterial hypertension
     Dosage: UNK
     Route: 065
  14. AMBRISENTAN [Concomitant]
     Active Substance: AMBRISENTAN
     Indication: Pulmonary arterial hypertension
     Dosage: UNK
     Route: 065
  15. TADALAFIL [Concomitant]
     Active Substance: TADALAFIL
     Indication: Pulmonary arterial hypertension
     Dosage: UNK
     Route: 065

REACTIONS (20)
  - Hospitalisation [Unknown]
  - Gastrooesophageal reflux disease [Recovered/Resolved]
  - Chest discomfort [Not Recovered/Not Resolved]
  - Temperature intolerance [Not Recovered/Not Resolved]
  - Food aversion [Not Recovered/Not Resolved]
  - Dyspnoea [Recovering/Resolving]
  - Mental disorder [Not Recovered/Not Resolved]
  - Cough [Recovered/Resolved]
  - Tachycardia [Recovered/Resolved]
  - Diarrhoea [Recovered/Resolved]
  - Asthenia [Not Recovered/Not Resolved]
  - Depression [Not Recovered/Not Resolved]
  - Headache [Not Recovered/Not Resolved]
  - Anxiety [Not Recovered/Not Resolved]
  - Taste disorder [Not Recovered/Not Resolved]
  - Nausea [Recovered/Resolved]
  - Dizziness [Unknown]
  - Decreased appetite [Not Recovered/Not Resolved]
  - Fatigue [Recovered/Resolved]
  - Weight decreased [Not Recovered/Not Resolved]

NARRATIVE: CASE EVENT DATE: 20221006
